FAERS Safety Report 8005794-4 (Version None)
Quarter: 2011Q4

REPORT INFORMATION
  Report Type: 
  Country: None (occurrence: None)
  Receive Date: 20111223
  Receipt Date: 20111221
  Transmission Date: 20120403
  Serious: Yes (Death, Hospitalization, Other)
  Sender: FDA-Public Use
  Company Number: BR-ROCHE-726240

PATIENT
  Sex: Female
  Weight: 75 kg

DRUGS (10)
  1. MABTHERA [Suspect]
     Route: 065
  2. MELOXICAM [Concomitant]
     Indication: RHEUMATOID ARTHRITIS
  3. MACRODANTINA [Concomitant]
     Indication: URINARY TRACT INFECTION
  4. BENICAR [Concomitant]
     Indication: HYPERTENSION
  5. LUDIOMIL [Concomitant]
     Indication: DEPRESSION
  6. MABTHERA [Suspect]
     Indication: RHEUMATOID ARTHRITIS
     Route: 065
  7. MABTHERA [Suspect]
     Route: 065
  8. OLCADIL [Concomitant]
     Indication: SEDATION
  9. MABTHERA [Suspect]
     Route: 065
     Dates: start: 20100505, end: 20100520
  10. PREDNISONE TAB [Concomitant]
     Indication: RHEUMATOID ARTHRITIS

REACTIONS (7)
  - PAIN IN EXTREMITY [None]
  - CARDIAC ARREST [None]
  - RHEUMATOID ARTHRITIS [None]
  - URINARY TRACT INFECTION [None]
  - PULMONARY EMBOLISM [None]
  - SWELLING [None]
  - FINGER DEFORMITY [None]
